FAERS Safety Report 4899649-1 (Version None)
Quarter: 2006Q1

REPORT INFORMATION
  Report Type: 
  Country: None (occurrence: None)
  Receive Date: 20060131
  Receipt Date: 20060124
  Transmission Date: 20060701
  Serious: No
  Sender: FDA-Public Use
  Company Number: MED000086

PATIENT
  Age: 16 Year
  Sex: Male

DRUGS (4)
  1. LACTATED RINGER'S IN PLASTIC CONTAINER [Suspect]
  2. MORPHINE [Concomitant]
  3. PROPOFOL [Concomitant]
  4. ANCEF [Suspect]

REACTIONS (1)
  - INFUSION SITE ERYTHEMA [None]
